FAERS Safety Report 7460426-9 (Version None)
Quarter: 2011Q2

REPORT INFORMATION
  Report Type: 
  Country: None (occurrence: None)
  Receive Date: 20110505
  Receipt Date: 20110412
  Transmission Date: 20111010
  Serious: Yes (Hospitalization, Other)
  Sender: FDA-Public Use
  Company Number: B0715089A

PATIENT
  Sex: Male

DRUGS (5)
  1. KEPPRA [Suspect]
     Indication: EPILEPSY
     Dosage: 1250MG TWICE PER DAY
     Route: 065
     Dates: start: 20090101
  2. ZEBINIX [Suspect]
     Route: 065
  3. BACLOFEN [Concomitant]
     Indication: MUSCLE ATROPHY
     Dosage: 10MG PER DAY
     Route: 065
  4. TURIXIN [Concomitant]
     Route: 045
  5. LAMOTRIGINE [Suspect]
     Indication: EPILEPSY
     Dosage: 50MG PER DAY
     Route: 065
     Dates: start: 20100601, end: 20100901

REACTIONS (3)
  - PNEUMONIA STAPHYLOCOCCAL [None]
  - THROMBOCYTOPENIA [None]
  - LEUKOPENIA [None]
